FAERS Safety Report 8398894-0 (Version None)
Quarter: 2012Q2

REPORT INFORMATION
  Report Type: 
  Country: None (occurrence: None)
  Receive Date: 20120525
  Receipt Date: 20120510
  Transmission Date: 20120825
  Serious: Yes (Life-Threatening, Other)
  Sender: FDA-Public Use
  Company Number: 2012P1026503

PATIENT
  Age: 1 Month
  Sex: Male

DRUGS (2)
  1. CORHYDRON [Concomitant]
  2. CEFUROXIME [Suspect]
     Dosage: 450 MG;QD;IV
     Route: 042
     Dates: start: 20120402, end: 20120407

REACTIONS (4)
  - ANAPHYLACTIC SHOCK [None]
  - RESPIRATORY ARREST [None]
  - HYPOTONIA [None]
  - RASH ERYTHEMATOUS [None]
